FAERS Safety Report 7364302-1 (Version None)
Quarter: 2011Q1

REPORT INFORMATION
  Report Type: 
  Country: None (occurrence: None)
  Receive Date: 20110321
  Receipt Date: 20110315
  Transmission Date: 20110831
  Serious: Yes (Hospitalization)
  Sender: FDA-Public Use
  Company Number: B0706517A

PATIENT
  Sex: Female

DRUGS (1)
  1. PAROXETINE HCL [Suspect]
     Indication: PANIC ATTACK
     Dosage: 60MG PER DAY
     Route: 064
     Dates: start: 20100101

REACTIONS (5)
  - TREMOR [None]
  - HYPERTONIA [None]
  - DRUG WITHDRAWAL SYNDROME NEONATAL [None]
  - DRUG EXPOSURE DURING PREGNANCY [None]
  - CRYING [None]
